FAERS Safety Report 10703983 (Version 2)
Quarter: 2015Q3

REPORT INFORMATION
  Report Type: Spontaneous
  Country: US (occurrence: US)
  Receive Date: 20150112
  Receipt Date: 20150803
  Transmission Date: 20151125
  Serious: Yes (Other)
  Sender: FDA-Public Use
  Company Number: US-PFIZER INC-2015008242

PATIENT
  Age: 85 Year
  Sex: Female
  Weight: 47 kg

DRUGS (3)
  1. LYRICA [Suspect]
     Active Substance: PREGABALIN
     Indication: SPINAL COLUMN STENOSIS
     Dosage: 175 MG, 1X/DAY
     Dates: start: 201501
  2. LYRICA [Suspect]
     Active Substance: PREGABALIN
     Dosage: ^275^
  3. LYRICA [Suspect]
     Active Substance: PREGABALIN
     Indication: SPINAL CORD DISORDER
     Dosage: 175 MG, 2X/DAY

REACTIONS (8)
  - Balance disorder [Unknown]
  - Musculoskeletal stiffness [Unknown]
  - Nerve injury [Unknown]
  - Arthritis [Unknown]
  - Arthropathy [Unknown]
  - Limb discomfort [Unknown]
  - Weight decreased [Unknown]
  - Hypoaesthesia [Unknown]
